FAERS Safety Report 8217689-1 (Version None)
Quarter: 2012Q1

REPORT INFORMATION
  Report Type: 
  Country: None (occurrence: None)
  Receive Date: 20120314
  Receipt Date: 20120228
  Transmission Date: 20120608
  Serious: Yes (Hospitalization)
  Sender: FDA-Public Use
  Company Number: B0785606A

PATIENT
  Age: 23 Month
  Sex: Female

DRUGS (3)
  1. CEFTRIAXONE [Suspect]
  2. DICLOFENAC EPOLAMINE [Suspect]
  3. CEFTAZIDIME SODIUM [Suspect]

REACTIONS (4)
  - RENAL FAILURE ACUTE [None]
  - HYPERTENSION [None]
  - HYDRONEPHROSIS [None]
  - TUBULOINTERSTITIAL NEPHRITIS [None]
